FAERS Safety Report 9344717 (Version 1)
Quarter: 2013Q2

REPORT INFORMATION
  Report Type: Spontaneous
  Country: US (occurrence: None)
  Receive Date: 20130611
  Receipt Date: 20130611
  Transmission Date: 20140414
  Serious: Yes (Life-Threatening, Hospitalization, Disabling)
  Sender: FDA-Public Use
  Company Number: None

PATIENT
  Sex: 0

DRUGS (1)
  1. SMZ-TMP DS [Suspect]
     Dosage: 2 PILLS
     Route: 048
     Dates: start: 20130412, end: 20130420

REACTIONS (3)
  - Drug hypersensitivity [None]
  - Mouth ulceration [None]
  - Anorectal disorder [None]
